FAERS Safety Report 12686232 (Version 1)
Quarter: 2016Q3

REPORT INFORMATION
  Report Type: Spontaneous
  Country: US (occurrence: US)
  Receive Date: 20160825
  Receipt Date: 20160825
  Transmission Date: 20161109
  Serious: No
  Sender: FDA-Public Use
  Company Number: US-JAZZ-2016-US-006793

PATIENT
  Age: 54 Year
  Sex: Female

DRUGS (31)
  1. HYDROCHLOROTHIAZIDE. [Concomitant]
     Active Substance: HYDROCHLOROTHIAZIDE
  2. HYDRALAZINE [Concomitant]
     Active Substance: HYDRALAZINE HYDROCHLORIDE
  3. CARVEDILOL. [Concomitant]
     Active Substance: CARVEDILOL
  4. FAMCICLOVIR. [Concomitant]
     Active Substance: FAMCICLOVIR
  5. LEVOCETIRIZINE DIHYDROCHLORIDE. [Concomitant]
     Active Substance: LEVOCETIRIZINE DIHYDROCHLORIDE
  6. PROAIR HFA [Concomitant]
     Active Substance: ALBUTEROL SULFATE
  7. MELOXICAM. [Concomitant]
     Active Substance: MELOXICAM
  8. PREDNISONE. [Concomitant]
     Active Substance: PREDNISONE
  9. DIOVAN [Concomitant]
     Active Substance: VALSARTAN
  10. KLOR-CON [Concomitant]
     Active Substance: POTASSIUM CHLORIDE
  11. TYLENOL [Concomitant]
     Active Substance: ACETAMINOPHEN
  12. FUROSEMIDE. [Concomitant]
     Active Substance: FUROSEMIDE
  13. ASTELIN [Concomitant]
     Active Substance: AZELASTINE HYDROCHLORIDE
  14. IPRATROPIUM/ALBUTEROL [Concomitant]
     Active Substance: ALBUTEROL\IPRATROPIUM
  15. XYREM [Suspect]
     Active Substance: SODIUM OXYBATE
     Indication: NARCOLEPSY
     Dosage: 3 G, BID
     Route: 048
     Dates: start: 20160408
  16. NEXIUM [Concomitant]
     Active Substance: ESOMEPRAZOLE MAGNESIUM
  17. OMEPRAZOLE. [Concomitant]
     Active Substance: OMEPRAZOLE
  18. STRATTERA [Concomitant]
     Active Substance: ATOMOXETINE HYDROCHLORIDE
  19. FLONASE [Concomitant]
     Active Substance: FLUTICASONE PROPIONATE
  20. NORCO [Concomitant]
     Active Substance: ACETAMINOPHEN\HYDROCODONE BITARTRATE
  21. NUVIGIL [Concomitant]
     Active Substance: ARMODAFINIL
  22. SUCRALFATE. [Concomitant]
     Active Substance: SUCRALFATE
  23. LEVOTHYROXINE SODIUM. [Concomitant]
     Active Substance: LEVOTHYROXINE SODIUM
  24. GABAPENTIN. [Concomitant]
     Active Substance: GABAPENTIN
  25. VITAMINS [Concomitant]
     Active Substance: VITAMINS
  26. VALSARTAN. [Concomitant]
     Active Substance: VALSARTAN
  27. SYMBICORT [Concomitant]
     Active Substance: BUDESONIDE\FORMOTEROL FUMARATE DIHYDRATE
  28. XYREM [Suspect]
     Active Substance: SODIUM OXYBATE
     Indication: CATAPLEXY
  29. TERAZOSIN [Concomitant]
     Active Substance: TERAZOSIN\TERAZOSIN HYDROCHLORIDE
  30. ZYRTEC [Concomitant]
     Active Substance: CETIRIZINE HYDROCHLORIDE
  31. AMBIEN [Concomitant]
     Active Substance: ZOLPIDEM TARTRATE

REACTIONS (7)
  - Asthenia [Not Recovered/Not Resolved]
  - Movement disorder [Not Recovered/Not Resolved]
  - Cataplexy [Not Recovered/Not Resolved]
  - Sluggishness [Not Recovered/Not Resolved]
  - Somnolence [Not Recovered/Not Resolved]
  - Feeling hot [Not Recovered/Not Resolved]
  - Paraesthesia [Not Recovered/Not Resolved]

NARRATIVE: CASE EVENT DATE: 201604
